FAERS Safety Report 8936167 (Version 2)
Quarter: 2012Q4

REPORT INFORMATION
  Report Type: 
  Country: US (occurrence: None)
  Receive Date: 20121121
  Receipt Date: 20121129
  Transmission Date: 20130627
  Serious: Yes (Other)
  Sender: FDA-Public Use
  Company Number: JPI-P-026291

PATIENT
  Age: 67 Year
  Sex: Male

DRUGS (3)
  1. XYREM [Suspect]
     Indication: NARCOLEPSY
     Dosage: 6 gm (3 gm, 2 in 1 D), Oral
     Route: 048
     Dates: start: 20120419, end: 2012
  2. XYREM [Suspect]
     Indication: NARCOLEPSY
     Route: 048
     Dates: start: 2012, end: 2012
  3. XYREM [Suspect]
     Indication: NARCOLEPSY
     Dates: start: 2012, end: 2012

REACTIONS (7)
  - Somnolence [None]
  - Gait disturbance [None]
  - Dizziness [None]
  - Feeling drunk [None]
  - Fall [None]
  - Face injury [None]
  - Prostatomegaly [None]
